FAERS Safety Report 20519103 (Version 2)
Quarter: 2022Q1

REPORT INFORMATION
  Report Type: Report from Study
  Country: KR (occurrence: KR)
  Receive Date: 20220225
  Receipt Date: 20220325
  Transmission Date: 20220423
  Serious: Yes (Death, Hospitalization, Other)
  Sender: FDA-Public Use
  Company Number: KR-002147023-NVSC2022KR036304

PATIENT

DRUGS (1)
  1. RUXOLITINIB [Suspect]
     Active Substance: RUXOLITINIB
     Indication: Myelofibrosis
     Dosage: 20 MG (DAILY DOSE)
     Route: 048
     Dates: start: 20210820, end: 20211210

REACTIONS (5)
  - C-reactive protein increased [Unknown]
  - Colitis [Fatal]
  - Sepsis [Fatal]
  - Depressed level of consciousness [Fatal]
  - White blood cell count decreased [Unknown]

NARRATIVE: CASE EVENT DATE: 20211211
